FAERS Safety Report 23935872 (Version 1)
Quarter: 2024Q2

REPORT INFORMATION
  Report Type: Spontaneous
  Country: SE (occurrence: SE)
  Receive Date: 20240604
  Receipt Date: 20240604
  Transmission Date: 20240716
  Serious: Yes (Hospitalization)
  Sender: FDA-Public Use
  Company Number: None

PATIENT
  Age: 81 Year
  Sex: Male

DRUGS (2)
  1. VABYSMO [Suspect]
     Active Substance: FARICIMAB\FARICIMAB-SVOA
     Indication: Neovascular age-related macular degeneration
     Dosage: DOS 1, STRENGTH: 120 MG/ML
     Route: 065
     Dates: start: 20240416, end: 20240416
  2. RHINOCORT AQUA [Concomitant]
     Active Substance: BUDESONIDE

REACTIONS (3)
  - Eye inflammation [Recovering/Resolving]
  - Ocular vasculitis [Recovering/Resolving]
  - Vitritis [Recovering/Resolving]

NARRATIVE: CASE EVENT DATE: 20240501
